FAERS Safety Report 8968911 (Version 2)
Quarter: 2012Q4

REPORT INFORMATION
  Report Type: 
  Country: US (occurrence: US)
  Receive Date: 20121218
  Receipt Date: 20121228
  Transmission Date: 20130627
  Serious: Yes (Hospitalization)
  Sender: FDA-Public Use
  Company Number: US-BIOGENIDEC-2012BI058913

PATIENT
  Age: 51 Year
  Sex: Female

DRUGS (1)
  1. AVONEX [Suspect]
     Indication: MULTIPLE SCLEROSIS
     Route: 030
     Dates: end: 2012

REACTIONS (12)
  - Myocardial infarction [Recovered/Resolved]
  - Atypical pneumonia [Recovered/Resolved]
  - Blood potassium decreased [Recovered/Resolved]
  - Oral infection [Recovered/Resolved]
  - Road traffic accident [Recovered/Resolved]
  - Joint injury [Recovered/Resolved]
  - Upper limb fracture [Not Recovered/Not Resolved]
  - Contrast media reaction [Recovered/Resolved]
  - Poor venous access [Not Recovered/Not Resolved]
  - Cartilage injury [Not Recovered/Not Resolved]
  - Limb injury [Recovered/Resolved]
  - Heart rate irregular [Unknown]
